FAERS Safety Report 16218688 (Version 1)
Quarter: 2019Q2

REPORT INFORMATION
  Report Type: Spontaneous
  Country: GB (occurrence: GB)
  Receive Date: 20190419
  Receipt Date: 20190419
  Transmission Date: 20190711
  Serious: Yes (Life-Threatening, Hospitalization, Other)
  Sender: FDA-Public Use
  Company Number: GB-TEVA-2019-GB-1037744

PATIENT
  Age: 74 Year
  Sex: Female
  Weight: 69.4 kg

DRUGS (3)
  1. ALENDRONIC ACID [Suspect]
     Active Substance: ALENDRONIC ACID
     Route: 048
     Dates: end: 20180304
  2. DENOSUMAB [Concomitant]
     Active Substance: DENOSUMAB
     Dosage: AS DIRECTED, 60MG/1ML
     Dates: start: 20190116
  3. AMLODIPINE [Concomitant]
     Active Substance: AMLODIPINE BESYLATE
     Dosage: 5 MILLIGRAM DAILY;
     Dates: start: 20190110

REACTIONS (4)
  - Upper gastrointestinal haemorrhage [Recovered/Resolved]
  - Hypotension [Unknown]
  - Melaena [Unknown]
  - Haematemesis [Unknown]

NARRATIVE: CASE EVENT DATE: 20180304
